FAERS Safety Report 16529288 (Version 1)
Quarter: 2019Q3

REPORT INFORMATION
  Report Type: Spontaneous
  Country: GB (occurrence: GB)
  Receive Date: 20190704
  Receipt Date: 20190704
  Transmission Date: 20191004
  Serious: Yes (Disabling, Other)
  Sender: FDA-Public Use
  Company Number: PHHY2019GB152830

PATIENT
  Age: 44 Year
  Sex: Female
  Weight: 64 kg

DRUGS (1)
  1. TERBINAFINE HYDROCHLORIDE. [Suspect]
     Active Substance: TERBINAFINE HYDROCHLORIDE
     Indication: ONYCHOMYCOSIS
     Dosage: 1 DF, UNK
     Route: 048
     Dates: start: 20190313, end: 20190314

REACTIONS (3)
  - Diarrhoea [Recovered/Resolved]
  - Vomiting [Recovered/Resolved]
  - Vertigo [Recovered/Resolved]

NARRATIVE: CASE EVENT DATE: 20190313
